FAERS Safety Report 19074420 (Version 1)
Quarter: 2021Q1

REPORT INFORMATION
  Report Type: Spontaneous
  Country: US (occurrence: US)
  Receive Date: 20210330
  Receipt Date: 20210330
  Transmission Date: 20210420
  Serious: No
  Sender: FDA-Public Use
  Company Number: US-TEVA-2021-US-1894112

PATIENT
  Sex: Male

DRUGS (2)
  1. COPAXONE [Suspect]
     Active Substance: GLATIRAMER ACETATE
     Dosage: FORM STRENGTH UNKNWON
     Route: 065
     Dates: start: 2020
  2. AJ2 [DEVICE] [Suspect]
     Active Substance: DEVICE
     Route: 065

REACTIONS (1)
  - Injection site bruising [Unknown]
